FAERS Safety Report 9142675 (Version 2)
Quarter: 2014Q2

REPORT INFORMATION
  Report Type: Report from Study
  Country: BD (occurrence: BD)
  Receive Date: 20130306
  Receipt Date: 20140403
  Transmission Date: 20141212
  Serious: Yes (Death)
  Sender: FDA-Public Use
  Company Number: PHHY2013BD021390

PATIENT
  Age: 75 Year
  Sex: Female

DRUGS (3)
  1. EXELON PATCH [Suspect]
     Indication: DEMENTIA
     Dosage: 4.6 MG (PATCH 5CM2), DAILY
     Route: 062
     Dates: start: 201209
  2. DRUG THERAPY NOS [Concomitant]
     Indication: DIABETES MELLITUS
     Dosage: UNK UKN, UNK
     Route: 048
     Dates: start: 2002
  3. VITAMINS NOS [Concomitant]
     Indication: ASTHENIA
     Dosage: UNK UKN, UNK
     Route: 048
     Dates: start: 2007

REACTIONS (3)
  - Diabetes mellitus [Fatal]
  - Dementia [Fatal]
  - Asthenia [Unknown]
